FAERS Safety Report 4995740-X (Version None)
Quarter: 2006Q1

REPORT INFORMATION
  Report Type: 
  Country: None (occurrence: None)
  Receive Date: 20060315
  Receipt Date: 20051205
  Transmission Date: 20060701
  Serious: Yes (Other)
  Sender: FDA-Public Use
  Company Number: 427461

PATIENT
  Age: 50 Year
  Sex: Female

DRUGS (2)
  1. BONIVA [Suspect]
     Indication: OSTEOPOROSIS PROPHYLAXIS
     Dosage: 150 MG 1 PER MONTH ORAL
     Route: 048
     Dates: start: 20051201, end: 20051201
  2. ESTROGEN PATCH (ESTROGENS NOS) [Concomitant]

REACTIONS (3)
  - ARTHRALGIA [None]
  - GASTRITIS [None]
  - MYALGIA [None]
